FAERS Safety Report 23475910 (Version 1)
Quarter: 2024Q1

REPORT INFORMATION
  Report Type: Report from Study
  Country: US (occurrence: US)
  Receive Date: 20240204
  Receipt Date: 20240204
  Transmission Date: 20240409
  Serious: No
  Sender: FDA-Public Use
  Company Number: US-EXELIXIS-CABO-23061425

PATIENT
  Sex: Female

DRUGS (6)
  1. CABOMETYX [Suspect]
     Active Substance: CABOZANTINIB S-MALATE
     Indication: Renal cancer
     Dosage: 40 MG, QD
     Route: 048
     Dates: start: 2022
  2. NOVOLIN N [Concomitant]
     Active Substance: INSULIN HUMAN
  3. NOVOLOG [Concomitant]
     Active Substance: INSULIN ASPART
  4. GABAPENTIN [Concomitant]
     Active Substance: GABAPENTIN
  5. TYLENOL [Concomitant]
     Active Substance: ACETAMINOPHEN
  6. HYDROCORTISONE ACETATE [Concomitant]
     Active Substance: HYDROCORTISONE ACETATE
     Dosage: UNK

REACTIONS (9)
  - Hyperkeratosis [Not Recovered/Not Resolved]
  - Weight increased [Recovering/Resolving]
  - Peripheral swelling [Recovering/Resolving]
  - Haemorrhoids [Recovered/Resolved]
  - Diarrhoea [Recovered/Resolved]
  - Dry mouth [Unknown]
  - Stomatitis [Not Recovered/Not Resolved]
  - Haemorrhoidal haemorrhage [Recovered/Resolved]
  - Urinary tract infection [Not Recovered/Not Resolved]
